FAERS Safety Report 15082751 (Version 1)
Quarter: 2018Q2

REPORT INFORMATION
  Report Type: Spontaneous
  Country: FR (occurrence: FR)
  Receive Date: 20180628
  Receipt Date: 20180628
  Transmission Date: 20180711
  Serious: Yes (Other)
  Sender: FDA-Public Use
  Company Number: FR-TEVA-2018-FR-912086

PATIENT
  Age: 33 Year
  Sex: Female

DRUGS (8)
  1. ESOMEPRAZOLE 40 MG [Concomitant]
     Active Substance: ESOMEPRAZOLE
     Dosage: 1 DOSAGE FORMS DAILY;
  2. DULOXETINE 30 MG [Suspect]
     Active Substance: DULOXETINE
     Indication: DEPRESSION
     Dosage: 1 DOSAGE FORMS DAILY;
     Route: 065
  3. NICOTINE. [Concomitant]
     Active Substance: NICOTINE
     Dosage: 21 MG + 14 MG PER DAY
  4. COPAXONE [Suspect]
     Active Substance: GLATIRAMER ACETATE
     Route: 065
     Dates: start: 20180601
  5. DIFFU K [Concomitant]
     Active Substance: POTASSIUM CHLORIDE
     Dosage: 4 DOSAGE FORMS DAILY;
  6. MEDROL 100 MG [Concomitant]
     Dosage: 10 DOSAGE FORMS DAILY;
  7. TRINORDIOL [Concomitant]
     Active Substance: ETHINYL ESTRADIOL\LEVONORGESTREL
  8. ALPRAZOLAM 0.25 [Concomitant]
     Active Substance: ALPRAZOLAM
     Dosage: .5 DOSAGE FORMS DAILY;

REACTIONS (3)
  - Injection site induration [Unknown]
  - Multiple sclerosis relapse [Unknown]
  - Vision blurred [Unknown]

NARRATIVE: CASE EVENT DATE: 20180613
